FAERS Safety Report 18516844 (Version 3)
Quarter: 2021Q1

REPORT INFORMATION
  Report Type: Report from Study
  Country: US (occurrence: US)
  Receive Date: 20201118
  Receipt Date: 20210215
  Transmission Date: 20210419
  Serious: Yes (Other)
  Sender: FDA-Public Use
  Company Number: US-GLAXOSMITHKLINE-US2019TSO202586

PATIENT
  Sex: Female

DRUGS (11)
  1. NIRAPARIB [Suspect]
     Active Substance: NIRAPARIB
     Indication: UTERINE CANCER
     Dosage: 200 MG, QD
     Route: 048
     Dates: start: 201904, end: 20191213
  2. NIRAPARIB [Suspect]
     Active Substance: NIRAPARIB
     Dosage: 200 MG, QD
     Route: 048
  3. NIRAPARIB [Suspect]
     Active Substance: NIRAPARIB
     Dosage: 200 MG, QD
  4. NIRAPARIB [Suspect]
     Active Substance: NIRAPARIB
     Dosage: 200 MG, QD
  5. NIRAPARIB [Suspect]
     Active Substance: NIRAPARIB
     Dosage: 200 MG, QD
     Route: 048
     Dates: start: 20191226
  6. NIRAPARIB [Suspect]
     Active Substance: NIRAPARIB
     Dosage: 200 MG, QD
  7. NIRAPARIB [Suspect]
     Active Substance: NIRAPARIB
     Dosage: 200 MG, QD
  8. NIRAPARIB [Suspect]
     Active Substance: NIRAPARIB
     Dosage: 200 MG, QD
  9. KEYTRUDA [Suspect]
     Active Substance: PEMBROLIZUMAB
     Indication: PRODUCT USED FOR UNKNOWN INDICATION
     Dosage: EVERY 3 WEEKS
     Route: 042
  10. NIRAPARIB [Suspect]
     Active Substance: NIRAPARIB
     Indication: UTERINE LEIOMYOSARCOMA
     Dosage: 200 MG, QD
     Route: 065
     Dates: start: 20191213
  11. NIRAPARIB [Suspect]
     Active Substance: NIRAPARIB
     Dosage: 200 MG, QD

REACTIONS (16)
  - Thrombosis [Unknown]
  - Neoplasm recurrence [Not Recovered/Not Resolved]
  - Sleep disorder [Recovered/Resolved]
  - Constipation [Recovered/Resolved]
  - Product use in unapproved indication [Unknown]
  - Vertigo [Recovered/Resolved]
  - Rash papular [Recovered/Resolved]
  - Vomiting [Recovered/Resolved]
  - Diarrhoea [Recovered/Resolved]
  - Rash pruritic [Recovered/Resolved]
  - Nausea [Recovered/Resolved]
  - Blood pressure increased [Recovered/Resolved]
  - Product use issue [Unknown]
  - Blood potassium decreased [Recovered/Resolved]
  - Product dose omission issue [Unknown]
  - Off label use [Unknown]
